FAERS Safety Report 6109560-6 (Version None)
Quarter: 2009Q1

REPORT INFORMATION
  Report Type: 
  Country: None (occurrence: None)
  Receive Date: 20090306
  Receipt Date: 20090223
  Transmission Date: 20090719
  Serious: No
  Sender: FDA-Public Use
  Company Number: US025565

PATIENT

DRUGS (1)
  1. FENTORA [Suspect]
     Indication: PAIN
     Dosage: BUCCAL
     Route: 002

REACTIONS (1)
  - DRUG PRESCRIBING ERROR [None]
